FAERS Safety Report 17534639 (Version 2)
Quarter: 2020Q2

REPORT INFORMATION
  Report Type: Spontaneous
  Country: FR (occurrence: FR)
  Receive Date: 20200312
  Receipt Date: 20200409
  Transmission Date: 20200713
  Serious: No
  Sender: FDA-Public Use
  Company Number: FR-AKCEA THERAPEUTICS-2019IS001486

PATIENT

DRUGS (1)
  1. TEGSEDI [Suspect]
     Active Substance: INOTERSEN SODIUM
     Indication: PRODUCT USED FOR UNKNOWN INDICATION

REACTIONS (6)
  - Visual impairment [Unknown]
  - Tinnitus [Unknown]
  - Vision blurred [Unknown]
  - Fatigue [Unknown]
  - Diarrhoea [Unknown]
  - Oedema peripheral [Unknown]
